FAERS Safety Report 13333852 (Version 7)
Quarter: 2017Q3

REPORT INFORMATION
  Report Type: Report from Study
  Country: US (occurrence: US)
  Receive Date: 20170313
  Receipt Date: 20170925
  Transmission Date: 20171127
  Serious: Yes (Hospitalization)
  Sender: FDA-Public Use
  Company Number: US-ACTELION-A-US2017-150684

PATIENT
  Age: 15 Month
  Sex: Male

DRUGS (8)
  1. TRACLEER [Suspect]
     Active Substance: BOSENTAN
     Indication: PULMONARY HYPERTENSION
     Dosage: 15.63 MG, BID
     Route: 048
     Dates: start: 20161213
  2. TRACLEER [Suspect]
     Active Substance: BOSENTAN
     Dosage: 62.5 MG, UNK
     Route: 048
     Dates: start: 20161213
  3. FERROUS SULFATE. [Concomitant]
     Active Substance: FERROUS SULFATE
  4. AMOXICILLIN. [Concomitant]
     Active Substance: AMOXICILLIN
  5. LOVENOX [Concomitant]
     Active Substance: ENOXAPARIN SODIUM
  6. FUROSEMIDE. [Concomitant]
     Active Substance: FUROSEMIDE
  7. REVATIO [Concomitant]
     Active Substance: SILDENAFIL CITRATE
  8. NYSTATIN. [Concomitant]
     Active Substance: NYSTATIN

REACTIONS (8)
  - Oral infection [Recovered/Resolved]
  - Hypoxia [Unknown]
  - Respiratory failure [Recovered/Resolved]
  - Respiratory syncytial virus infection [Recovered/Resolved]
  - Cardiac disorder [Unknown]
  - Cardiac operation [Recovering/Resolving]
  - Hepatic enzyme increased [Unknown]
  - Dyspnoea [Recovered/Resolved]

NARRATIVE: CASE EVENT DATE: 20170203
